FAERS Safety Report 17480853 (Version 1)
Quarter: 2020Q1

REPORT INFORMATION
  Report Type: Spontaneous
  Country: FR (occurrence: FR)
  Receive Date: 20200301
  Receipt Date: 20200301
  Transmission Date: 20200409
  Serious: Yes (Hospitalization)
  Sender: FDA-Public Use
  Company Number: FR-TEVA-2020-FR-1192951

PATIENT
  Age: 63 Year
  Sex: Female

DRUGS (3)
  1. CHLORHYDRATE DE TRAMADOL [Suspect]
     Active Substance: TRAMADOL HYDROCHLORIDE
     Route: 048
     Dates: start: 2019
  2. SKENAN [Suspect]
     Active Substance: MORPHINE SULFATE
     Route: 048
     Dates: start: 2019
  3. ACTISKENAN 10 MG, G?LULE [Suspect]
     Active Substance: MORPHINE SULFATE
     Route: 048
     Dates: start: 2019

REACTIONS (4)
  - Seizure [Recovered/Resolved]
  - Constipation [Recovered/Resolved]
  - Overdose [Recovered/Resolved]
  - Disturbance in attention [Recovered/Resolved]

NARRATIVE: CASE EVENT DATE: 201904
